FAERS Safety Report 20678108 (Version 1)
Quarter: 2022Q2

REPORT INFORMATION
  Report Type: Spontaneous
  Country: US (occurrence: None)
  Receive Date: 20220404
  Receipt Date: 20220404
  Transmission Date: 20220721
  Serious: Yes (Life-Threatening, Hospitalization, Other)
  Sender: FDA-Public Use
  Company Number: None

PATIENT
  Age: 66 Year
  Sex: Male

DRUGS (1)
  1. ABIRATERONE [Suspect]
     Active Substance: ABIRATERONE
     Indication: Prostate cancer
     Dosage: FREQUENCY : DAILY;?
     Route: 048
     Dates: start: 202003, end: 202203

REACTIONS (5)
  - Pulmonary oedema [None]
  - Hot flush [None]
  - Aortic valve replacement [None]
  - Septic shock [None]
  - Device related sepsis [None]

NARRATIVE: CASE EVENT DATE: 20211223
